FAERS Safety Report 5210990-5 (Version None)
Quarter: 2006Q4

REPORT INFORMATION
  Report Type: 
  Country: None (occurrence: None)
  Receive Date: 20061130
  Receipt Date: 20060227
  Transmission Date: 20070319
  Serious: Yes (Other)
  Sender: FDA-Public Use
  Company Number: WAES 0509USA04013

PATIENT
  Age: 56 Year
  Sex: Female
  Weight: 74.3899 kg

DRUGS (1)
  1. FOSAMAX [Suspect]
     Indication: OSTEOPOROSIS
     Dosage: PO
     Route: 048

REACTIONS (27)
  - ABDOMINAL PAIN [None]
  - BACK PAIN [None]
  - BURSITIS [None]
  - DEAFNESS [None]
  - DENTAL DISCOMFORT [None]
  - ESSENTIAL HYPERTENSION [None]
  - FATIGUE [None]
  - GINGIVAL BLEEDING [None]
  - HEPATIC ENZYME INCREASED [None]
  - HYPOAESTHESIA [None]
  - INSOMNIA [None]
  - MUSCULOSKELETAL PAIN [None]
  - NECK INJURY [None]
  - NECK PAIN [None]
  - NOCTURIA [None]
  - OBSESSIVE-COMPULSIVE DISORDER [None]
  - ORAL CANDIDIASIS [None]
  - OSTEOMYELITIS [None]
  - OSTEONECROSIS [None]
  - PYREXIA [None]
  - RASH [None]
  - ROAD TRAFFIC ACCIDENT [None]
  - SINUSITIS [None]
  - SPINAL COLUMN STENOSIS [None]
  - STRESS URINARY INCONTINENCE [None]
  - SYNOVIAL CYST [None]
  - VAGINAL INFECTION [None]
